FAERS Safety Report 18263874 (Version 1)
Quarter: 2020Q3

REPORT INFORMATION
  Report Type: Spontaneous
  Country: US (occurrence: US)
  Receive Date: 20200914
  Receipt Date: 20200914
  Transmission Date: 20201103
  Serious: No
  Sender: FDA-Public Use
  Company Number: US-AMGEN-USASP2020146423

PATIENT
  Sex: Male

DRUGS (2)
  1. PROCRIT [Suspect]
     Active Substance: ERYTHROPOIETIN
     Dosage: 10000 INTERNATIONAL UNIT PER 1 ML (EVERY TWO TO THREE WEEKS BASED ON HIS HEMOGLOBIN)
     Route: 065
     Dates: start: 2020
  2. PROCRIT [Suspect]
     Active Substance: ERYTHROPOIETIN
     Indication: CHRONIC KIDNEY DISEASE
     Dosage: 10000 INTERNATIONAL UNIT PER 1ML (EVERY TWO TO THREE WEEKS BASED ON HIS HEMOGLOBIN)
     Route: 065

REACTIONS (2)
  - Drug administered in wrong device [Unknown]
  - Product administration error [Unknown]

NARRATIVE: CASE EVENT DATE: 20200901
